FAERS Safety Report 11143202 (Version 1)
Quarter: 2015Q2

REPORT INFORMATION
  Report Type: Spontaneous
  Country: US (occurrence: US)
  Receive Date: 20150526
  Receipt Date: 20150526
  Transmission Date: 20150821
  Serious: No
  Sender: FDA-Public Use
  Company Number: US-NOVEN PHARMACEUTICALS, INC.-US2015000058

PATIENT
  Age: 50 Year
  Sex: Female

DRUGS (3)
  1. LEVOTHYROXINE SODIUM. [Concomitant]
     Active Substance: LEVOTHYROXINE SODIUM
  2. MINIVELLE [Suspect]
     Active Substance: ESTRADIOL
     Indication: OSTEOPOROSIS
     Dosage: 0.05 MG, UNK
     Route: 062
     Dates: start: 2014
  3. MINIVELLE [Suspect]
     Active Substance: ESTRADIOL
     Indication: HYPERTHYROIDISM

REACTIONS (2)
  - Therapeutic response unexpected [Unknown]
  - Drug prescribing error [Unknown]

NARRATIVE: CASE EVENT DATE: 2014
